FAERS Safety Report 17405536 (Version 2)
Quarter: 2020Q1

REPORT INFORMATION
  Report Type: Report from Study
  Country: US (occurrence: US)
  Receive Date: 20200212
  Receipt Date: 20200308
  Transmission Date: 20200409
  Serious: Yes (Hospitalization)
  Sender: FDA-Public Use
  Company Number: US-ROCHE-2542123

PATIENT
  Sex: Male

DRUGS (14)
  1. ACTEMRA [Suspect]
     Active Substance: TOCILIZUMAB
     Indication: OEDEMA
  2. ACTEMRA [Suspect]
     Active Substance: TOCILIZUMAB
     Indication: DRUG THERAPY
  3. ACTEMRA [Suspect]
     Active Substance: TOCILIZUMAB
     Indication: BACK PAIN
  4. ACTEMRA [Suspect]
     Active Substance: TOCILIZUMAB
     Indication: GASTRITIS
  5. ACTEMRA [Suspect]
     Active Substance: TOCILIZUMAB
     Indication: ANXIETY
  6. ACTEMRA [Suspect]
     Active Substance: TOCILIZUMAB
     Indication: DYSPNOEA
  7. ACTEMRA [Suspect]
     Active Substance: TOCILIZUMAB
     Indication: VITAMIN D DEFICIENCY
  8. ACTEMRA [Suspect]
     Active Substance: TOCILIZUMAB
     Indication: OSTEOARTHRITIS
  9. ACTEMRA [Suspect]
     Active Substance: TOCILIZUMAB
     Indication: ANAEMIA
  10. ACTEMRA [Suspect]
     Active Substance: TOCILIZUMAB
     Indication: VITAMIN B COMPLEX DEFICIENCY
  11. ACTEMRA [Suspect]
     Active Substance: TOCILIZUMAB
     Indication: ARTHRALGIA
  12. ACTEMRA [Suspect]
     Active Substance: TOCILIZUMAB
     Indication: ATRIAL FIBRILLATION
  13. ACTEMRA [Suspect]
     Active Substance: TOCILIZUMAB
     Indication: RHEUMATOID ARTHRITIS
     Dosage: INJECT 162MG SUBCUTANEOUSLY EVERY 2 WEEK(S)
     Route: 058
  14. ACTEMRA [Suspect]
     Active Substance: TOCILIZUMAB
     Indication: BONE DISORDER

REACTIONS (1)
  - Arrhythmia [Unknown]
